FAERS Safety Report 19454775 (Version 2)
Quarter: 2021Q3

REPORT INFORMATION
  Report Type: Spontaneous
  Country: CN (occurrence: CN)
  Receive Date: 20210623
  Receipt Date: 20210707
  Transmission Date: 20211014
  Serious: Yes (Other)
  Sender: FDA-Public Use
  Company Number: CN-JNJFOC-20210627114

PATIENT
  Age: 32 Year
  Sex: Female

DRUGS (1)
  1. WOMENS ROGAINE UNSCENTED [Suspect]
     Active Substance: MINOXIDIL
     Indication: PRODUCT USED FOR UNKNOWN INDICATION
     Dosage: THE PRODUCT WAS APPLIED TWICE, ONCE A DAY USED AT NIGHT.
     Route: 065
     Dates: start: 202106, end: 202106

REACTIONS (5)
  - Furuncle [Recovered/Resolved]
  - Dermatitis contact [Recovered/Resolved]
  - Product quality issue [Unknown]
  - Pharyngitis [Recovered/Resolved]
  - Seborrhoeic dermatitis [Recovered/Resolved]

NARRATIVE: CASE EVENT DATE: 202106
